FAERS Safety Report 8159303-X (Version None)
Quarter: 2012Q1

REPORT INFORMATION
  Report Type: 
  Country: None (occurrence: None)
  Receive Date: 20120223
  Receipt Date: 20120220
  Transmission Date: 20120608
  Serious: Yes (Hospitalization, Other)
  Sender: FDA-Public Use
  Company Number: CH-PFIZER INC-2012011697

PATIENT
  Age: 82 Year
  Sex: Male

DRUGS (5)
  1. LEUCOVORIN CALCIUM [Suspect]
     Indication: COLON CANCER METASTATIC
     Dosage: 30 MG, CYCLIC (3RD CYCLE)
     Route: 042
     Dates: start: 20111214, end: 20111214
  2. ERBITUX [Suspect]
     Indication: COLON CANCER METASTATIC
     Dosage: 500 MG, UNK
     Route: 042
     Dates: start: 20111214, end: 20111221
  3. IRINOTECAN HCL [Suspect]
     Indication: COLON CANCER METASTATIC
     Dosage: 240 MG, CYCLIC (3RD CYCLE)
     Route: 042
     Dates: start: 20111214, end: 20111214
  4. FLUOROURACIL [Suspect]
     Dosage: 2400 MG, CYCLIC (3RD CYCLE), DURING 24 HOURS
     Route: 041
     Dates: start: 20111214, end: 20111215
  5. FLUOROURACIL [Suspect]
     Indication: COLON CANCER METASTATIC
     Dosage: 300 MG, CYCLIC (3RD CYCLE)
     Route: 040
     Dates: start: 20111214, end: 20111215

REACTIONS (1)
  - VASCULITIS NECROTISING [None]
